FAERS Safety Report 7668055-9 (Version None)
Quarter: 2011Q3

REPORT INFORMATION
  Report Type: 
  Country: None (occurrence: None)
  Receive Date: 20110808
  Receipt Date: 20110805
  Transmission Date: 20111222
  Serious: No
  Sender: FDA-Public Use
  Company Number: US-PFIZER INC-2011179842

PATIENT
  Sex: Female
  Weight: 58.957 kg

DRUGS (4)
  1. ADVIL LIQUI-GELS [Suspect]
     Dosage: UNK
     Route: 048
  2. ADVIL LIQUI-GELS [Suspect]
     Indication: DYSMENORRHOEA
     Dosage: 200 MG THREE TO FOUR TABLETS
     Route: 048
  3. ALPRAZOLAM [Concomitant]
     Indication: ANXIETY
     Dosage: 2 MG, 2X/DAY
     Dates: end: 20110701
  4. LEXAPRO [Suspect]
     Indication: ANXIETY
     Dosage: UNK

REACTIONS (4)
  - NAUSEA [None]
  - ANXIETY [None]
  - MALAISE [None]
  - HEADACHE [None]
